FAERS Safety Report 7593419-1 (Version None)
Quarter: 2011Q3

REPORT INFORMATION
  Report Type: 
  Country: None (occurrence: None)
  Receive Date: 20110706
  Receipt Date: 20110629
  Transmission Date: 20111222
  Serious: No
  Sender: FDA-Public Use
  Company Number: JP-MERCK-1105USA03112

PATIENT
  Age: 88 Year
  Sex: Male
  Weight: 63 kg

DRUGS (8)
  1. BENIDIPINE HYDROCHLORIDE [Concomitant]
     Indication: HYPERTENSION
     Route: 048
     Dates: start: 20100401, end: 20110601
  2. MAGMITT [Suspect]
     Route: 048
     Dates: start: 20110601
  3. JANUVIA [Suspect]
     Route: 048
     Dates: start: 20110418, end: 20110519
  4. GLICLAZIDE [Concomitant]
     Indication: DIABETES MELLITUS
     Route: 048
     Dates: start: 20100201, end: 20110601
  5. VOGLIBOSE [Concomitant]
     Indication: DIABETES MELLITUS
     Route: 048
     Dates: start: 20100201, end: 20110101
  6. MAGMITT [Suspect]
     Route: 048
     Dates: start: 20101021, end: 20101201
  7. MAGMITT [Suspect]
     Indication: CONSTIPATION
     Route: 048
     Dates: start: 20100927, end: 20101010
  8. JANUVIA [Suspect]
     Indication: DIABETES MELLITUS
     Route: 048
     Dates: start: 20110120, end: 20110417

REACTIONS (1)
  - OEDEMA PERIPHERAL [None]
